FAERS Safety Report 8908671 (Version 2)
Quarter: 2012Q4

REPORT INFORMATION
  Report Type: Report from Study
  Country: JP (occurrence: JP)
  Receive Date: 20121114
  Receipt Date: 20121221
  Transmission Date: 20130627
  Serious: Yes (Other)
  Sender: FDA-Public Use
  Company Number: PHHY2012JP104236

PATIENT
  Age: 54 Year
  Sex: Female
  Weight: 63 kg

DRUGS (5)
  1. FTY 720 [Suspect]
     Dosage: 0.5 mg, daily
     Route: 048
     Dates: start: 20120417, end: 20120831
  2. GASMET [Concomitant]
     Indication: PROPHYLAXIS
     Dosage: 40 mg, UNK
     Route: 048
     Dates: end: 20120501
  3. MAGMITT [Concomitant]
     Indication: CONSTIPATION
     Dosage: 990 mg, UNK
     Route: 048
  4. MAGMITT [Concomitant]
     Indication: CONSTIPATION
  5. ALLELOCK [Concomitant]
     Indication: RHINITIS
     Dosage: 10 mg, UNK
     Route: 048
     Dates: start: 20120502, end: 20120724

REACTIONS (15)
  - Sinus bradycardia [Recovered/Resolved]
  - Heart rate decreased [Recovered/Resolved]
  - White blood cell count increased [Recovered/Resolved]
  - Varicella virus test positive [Unknown]
  - Epstein-Barr virus antibody positive [Unknown]
  - Blood creatine phosphokinase decreased [Unknown]
  - Protein total decreased [Unknown]
  - Blood albumin decreased [Unknown]
  - Blood alkaline phosphatase increased [Unknown]
  - Blood lactate dehydrogenase increased [Unknown]
  - Blood potassium increased [Unknown]
  - Red blood cell count increased [Unknown]
  - Blood glucose increased [Unknown]
  - Neutrophil count decreased [Unknown]
  - Lymphocyte count decreased [Unknown]
